FAERS Safety Report 5512506-2 (Version None)
Quarter: 2007Q4

REPORT INFORMATION
  Report Type: 
  Country: None (occurrence: None)
  Receive Date: 20071112
  Receipt Date: 20070529
  Transmission Date: 20080405
  Serious: No
  Sender: FDA-Public Use
  Company Number: A0653411A

PATIENT
  Age: 49 Year
  Sex: Male

DRUGS (1)
  1. AVANDAMET [Suspect]
     Indication: DRUG USE FOR UNKNOWN INDICATION
     Dates: start: 20060901

REACTIONS (1)
  - WEIGHT INCREASED [None]
